FAERS Safety Report 5538462-9 (Version None)
Quarter: 2007Q4

REPORT INFORMATION
  Report Type: 
  Country: None (occurrence: None)
  Receive Date: 20071205
  Receipt Date: 20071120
  Transmission Date: 20080405
  Serious: Yes (Other)
  Sender: FDA-Public Use
  Company Number: 2007S1012121

PATIENT
  Age: 47 Year
  Sex: Female

DRUGS (6)
  1. ENADURA (ENALAPRIL MALEATE) (10 MG) [Suspect]
     Indication: DRUG USE FOR UNKNOWN INDICATION
     Dosage: 300 MG;TOTAL;ORAL
     Route: 048
  2. CYMBALTA [Suspect]
  3. ENAHEXAL COMP (VASERETIC) [Suspect]
  4. LORAZEPAM [Suspect]
  5. MIRTAZAPINE [Suspect]
  6. VALPROATE SODIUM [Suspect]

REACTIONS (3)
  - FATIGUE [None]
  - MULTIPLE DRUG OVERDOSE INTENTIONAL [None]
  - SUICIDE ATTEMPT [None]
